FAERS Safety Report 26066124 (Version 1)
Quarter: 2025Q4

REPORT INFORMATION
  Report Type: Spontaneous
  Country: EU (occurrence: EU)
  Receive Date: 20251119
  Receipt Date: 20251119
  Transmission Date: 20260119
  Serious: Yes (Hospitalization)
  Sender: NOVARTIS
  Company Number: None

PATIENT
  Age: 59 Year
  Sex: Female
  Weight: 67 kg

DRUGS (3)
  1. MYFORTIC [Interacting]
     Active Substance: MYCOPHENOLATE SODIUM
     Indication: Renal graft infection
     Dosage: 540 MG, Q12H
     Route: 048
     Dates: start: 202503, end: 20250912
  2. ENVARSUS XR [Interacting]
     Active Substance: TACROLIMUS
     Indication: Transplant recipient
     Dosage: 5.75 MG, QD
     Route: 048
     Dates: start: 202502
  3. PREDNISONE [Interacting]
     Active Substance: PREDNISONE
     Indication: Transplantation complication
     Dosage: 5 MG, QD (886A)
     Route: 048
     Dates: start: 202502

REACTIONS (1)
  - Pyelonephritis [Recovered/Resolved]

NARRATIVE: CASE EVENT DATE: 20250910
